FAERS Safety Report 16941398 (Version 1)
Quarter: 2019Q4

REPORT INFORMATION
  Report Type: Spontaneous
  Country: US (occurrence: US)
  Receive Date: 20191021
  Receipt Date: 20191021
  Transmission Date: 20200122
  Serious: Yes (Other)
  Sender: FDA-Public Use
  Company Number: US-ELI_LILLY_AND_COMPANY-US201910006076

PATIENT
  Sex: Female

DRUGS (2)
  1. HUMULIN 70/30 [Suspect]
     Active Substance: INSULIN HUMAN
     Indication: TYPE 1 DIABETES MELLITUS
     Dosage: UNK UNK, UNKNOWN
     Route: 065
     Dates: start: 20190925
  2. HUMULIN R [Suspect]
     Active Substance: INSULIN HUMAN
     Indication: TYPE 1 DIABETES MELLITUS
     Dosage: UNK UNK, UNKNOWN
     Route: 065
     Dates: start: 2016, end: 20190925

REACTIONS (15)
  - Intraocular pressure increased [Not Recovered/Not Resolved]
  - Cataract [Unknown]
  - Asthenia [Not Recovered/Not Resolved]
  - Myocardial infarction [Unknown]
  - Cerebrovascular accident [Unknown]
  - Blindness unilateral [Not Recovered/Not Resolved]
  - Eye haemorrhage [Unknown]
  - Fatigue [Not Recovered/Not Resolved]
  - Frustration tolerance decreased [Unknown]
  - Drug ineffective [Unknown]
  - Chest pain [Unknown]
  - Retinal haemorrhage [Unknown]
  - Visual impairment [Unknown]
  - Malaise [Not Recovered/Not Resolved]
  - Blood glucose increased [Not Recovered/Not Resolved]

NARRATIVE: CASE EVENT DATE: 2018
